FAERS Safety Report 9270186 (Version 2)
Quarter: 2015Q4

REPORT INFORMATION
  Report Type: Spontaneous
  Country: US (occurrence: US)
  Receive Date: 20130503
  Receipt Date: 20151217
  Transmission Date: 20160305
  Serious: Yes (Death, Hospitalization, Other)
  Sender: FDA-Public Use
  Company Number: US-BAYER-2013-053225

PATIENT
  Age: 48 Year
  Sex: Female

DRUGS (14)
  1. PROMETHAZINE DM [Concomitant]
     Active Substance: DEXTROMETHORPHAN HYDROBROMIDE\PROMETHAZINE HYDROCHLORIDE
     Dosage: 250 MG, UNK
     Dates: start: 20060527
  2. ZYRTEC-D [Concomitant]
     Active Substance: CETIRIZINE HYDROCHLORIDE\PSEUDOEPHEDRINE HYDROCHLORIDE
     Dosage: UNK
     Dates: start: 20060327
  3. LISINOPRIL. [Concomitant]
     Active Substance: LISINOPRIL
  4. LUXIQ [Concomitant]
     Active Substance: BETAMETHASONE VALERATE
     Dosage: UNK
     Dates: start: 20060327
  5. DICLOFENAC SODIUM. [Concomitant]
     Active Substance: DICLOFENAC SODIUM
     Dosage: UNK
     Dates: start: 20060327
  6. SARAFEM [Concomitant]
     Active Substance: FLUOXETINE HYDROCHLORIDE
     Dosage: 20 MG, UNK
     Dates: start: 20060501
  7. LIPITOR [Concomitant]
     Active Substance: ATORVASTATIN CALCIUM
  8. EFFEXOR XR [Concomitant]
     Active Substance: VENLAFAXINE HYDROCHLORIDE
  9. LEVAQUIN [Concomitant]
     Active Substance: LEVOFLOXACIN
     Dosage: 500 MG, UNK
     Dates: start: 20060402
  10. SYNTHROID [Concomitant]
     Active Substance: LEVOTHYROXINE SODIUM
     Dosage: 0.15 MG, UNK
     Dates: start: 20060501
  11. AZITHROMYCIN [Concomitant]
     Active Substance: AZITHROMYCIN ANHYDROUS
     Dosage: 250 MG, UNK
     Dates: start: 20060527
  12. YAZ [Suspect]
     Active Substance: DROSPIRENONE\ETHINYL ESTRADIOL
  13. YASMIN [Suspect]
     Active Substance: DROSPIRENONE\ETHINYL ESTRADIOL
     Indication: MENSTRUAL CYCLE MANAGEMENT
  14. OMEPRAZOLE. [Concomitant]
     Active Substance: OMEPRAZOLE
     Dosage: 10 MG, UNK
     Dates: start: 20060502

REACTIONS (4)
  - Basal ganglia infarction [None]
  - Cerebrovascular accident [None]
  - Biliary cancer metastatic [Fatal]
  - Embolism arterial [None]

NARRATIVE: CASE EVENT DATE: 200606
